FAERS Safety Report 20984399 (Version 1)
Quarter: 2022Q2

REPORT INFORMATION
  Report Type: Spontaneous
  Country: US (occurrence: None)
  Receive Date: 20220621
  Receipt Date: 20220621
  Transmission Date: 20220721
  Serious: No
  Sender: FDA-Public Use
  Company Number: US-ROCHE-2827238

PATIENT
  Sex: Female

DRUGS (4)
  1. XELODA [Suspect]
     Active Substance: CAPECITABINE
     Indication: Breast cancer
     Route: 048
     Dates: start: 201911
  2. XELODA [Suspect]
     Active Substance: CAPECITABINE
     Dosage: NO
     Route: 048
  3. XELODA [Suspect]
     Active Substance: CAPECITABINE
     Dosage: NO
     Route: 048
  4. XELODA [Suspect]
     Active Substance: CAPECITABINE
     Dosage: YES
     Route: 048

REACTIONS (3)
  - Palmar-plantar erythrodysaesthesia syndrome [Unknown]
  - Therapy non-responder [Unknown]
  - Incorrect dose administered [Unknown]
